FAERS Safety Report 5292038-X (Version None)
Quarter: 2007Q2

REPORT INFORMATION
  Report Type: 
  Country: None (occurrence: None)
  Receive Date: 20070406
  Receipt Date: 20070406
  Transmission Date: 20071010
  Serious: Yes (Hospitalization)
  Sender: FDA-Public Use
  Company Number: None

PATIENT
  Sex: Male

DRUGS (9)
  1. CYTOXAN [Suspect]
     Indication: NON-HODGKIN'S LYMPHOMA
     Dosage: 750 MG/M2 IV
     Route: 042
     Dates: start: 20070326
  2. ADRIAMYCIN PFS [Suspect]
     Indication: NON-HODGKIN'S LYMPHOMA
     Dosage: 50 MG/M2 IV
     Route: 042
     Dates: start: 20070326
  3. VINCRISTINE [Suspect]
     Indication: NON-HODGKIN'S LYMPHOMA
     Dosage: 2.0 MG IVP
     Route: 042
     Dates: start: 20070326
  4. PREDNISONE TAB [Suspect]
     Indication: NON-HODGKIN'S LYMPHOMA
     Dosage: 100 MG PO
     Route: 048
     Dates: start: 20070326, end: 20070330
  5. RITUXAN [Concomitant]
  6. NEULASTA [Concomitant]
  7. DIFLUCAN [Concomitant]
  8. MYCELEX [Concomitant]
  9. ALLOPURINOL [Concomitant]

REACTIONS (10)
  - ASTHENIA [None]
  - DYSPHAGIA [None]
  - DYSPNOEA [None]
  - FEBRILE NEUTROPENIA [None]
  - ORAL INTAKE REDUCED [None]
  - ORAL SOFT TISSUE DISORDER [None]
  - RESPIRATORY RATE INCREASED [None]
  - RHONCHI [None]
  - TACHYCARDIA [None]
  - WHEEZING [None]
